FAERS Safety Report 9704668 (Version 1)
Quarter: 2013Q4

REPORT INFORMATION
  Report Type: Spontaneous
  Country: US (occurrence: US)
  Receive Date: 20131122
  Receipt Date: 20131122
  Transmission Date: 20140711
  Serious: Yes (Other)
  Sender: FDA-Public Use
  Company Number: US-PFIZER INC-2013333777

PATIENT
  Age: 55 Year
  Sex: Female
  Weight: 95.24 kg

DRUGS (4)
  1. CELEBREX [Suspect]
     Indication: ARTHRITIS
     Dosage: 200 MG, 2X/DAY
     Route: 048
  2. EFFEXOR [Concomitant]
     Dosage: UNK
  3. LITHIUM [Concomitant]
     Dosage: UNK
  4. LIPITOR [Concomitant]
     Dosage: UNK

REACTIONS (1)
  - Arthritis [Unknown]
